FAERS Safety Report 9800119 (Version 3)
Quarter: 2015Q3

REPORT INFORMATION
  Report Type: Spontaneous
  Country: US (occurrence: US)
  Receive Date: 20140106
  Receipt Date: 20150806
  Transmission Date: 20151125
  Serious: No
  Sender: FDA-Public Use
  Company Number: US-GILEAD-2010-0032572

PATIENT
  Age: 57 Year
  Sex: Female
  Weight: 141.52 kg

DRUGS (26)
  1. XANAX [Concomitant]
     Active Substance: ALPRAZOLAM
  2. PROZAC [Concomitant]
     Active Substance: FLUOXETINE HYDROCHLORIDE
  3. POTASSIUM CHLORIDE. [Concomitant]
     Active Substance: POTASSIUM CHLORIDE
  4. PROTONIX [Concomitant]
     Active Substance: PANTOPRAZOLE SODIUM
  5. METOPROLOL [Concomitant]
     Active Substance: METOPROLOL
  6. ASPIRIN. [Concomitant]
     Active Substance: ASPIRIN
  7. OXYGEN. [Concomitant]
     Active Substance: OXYGEN
  8. DUONEB [Concomitant]
     Active Substance: ALBUTEROL SULFATE\IPRATROPIUM BROMIDE
  9. REGLAN [Concomitant]
     Active Substance: METOCLOPRAMIDE HYDROCHLORIDE
  10. CEFTIN [Concomitant]
     Active Substance: CEFUROXIME AXETIL
  11. SINGULAIR [Concomitant]
     Active Substance: MONTELUKAST SODIUM
  12. MULTIVITAMIN [Concomitant]
     Active Substance: VITAMINS
  13. LASIX [Concomitant]
     Active Substance: FUROSEMIDE
  14. COLACE [Concomitant]
     Active Substance: DOCUSATE SODIUM
  15. AMBIEN [Concomitant]
     Active Substance: ZOLPIDEM TARTRATE
  16. ZOCOR [Concomitant]
     Active Substance: SIMVASTATIN
  17. XOPENEX HFA [Concomitant]
     Active Substance: LEVALBUTEROL TARTRATE
  18. LANTUS [Concomitant]
     Active Substance: INSULIN GLARGINE
  19. HUMALOG [Concomitant]
     Active Substance: INSULIN LISPRO
  20. FLONASE [Concomitant]
     Active Substance: FLUTICASONE PROPIONATE
  21. LETAIRIS [Suspect]
     Active Substance: AMBRISENTAN
     Indication: PULMONARY HYPERTENSION
     Route: 048
     Dates: start: 20091113
  22. PLAVIX [Concomitant]
     Active Substance: CLOPIDOGREL BISULFATE
  23. PREDNISONE. [Concomitant]
     Active Substance: PREDNISONE
  24. ADCIRCA [Concomitant]
     Active Substance: TADALAFIL
     Indication: PULMONARY ARTERIAL HYPERTENSION
     Dates: start: 20100414
  25. DARVOCET [Concomitant]
     Active Substance: ACETAMINOPHEN\PROPOXYPHENE HYDROCHLORIDE
  26. ALLEGRA [Concomitant]
     Active Substance: FEXOFENADINE HYDROCHLORIDE

REACTIONS (1)
  - Syncope [Unknown]
